FAERS Safety Report 14090876 (Version 1)
Quarter: 2017Q4

REPORT INFORMATION
  Report Type: Report from Study
  Country: US (occurrence: US)
  Receive Date: 20171015
  Receipt Date: 20171015
  Transmission Date: 20180321
  Serious: Yes (Hospitalization, Other)
  Sender: FDA-Public Use
  Company Number: US-BRISTOL-MYERS SQUIBB COMPANY-BMS-2017-091612

PATIENT
  Age: 43 Year
  Sex: Male
  Weight: 80.2 kg

DRUGS (4)
  1. FEXOFENADINE [Concomitant]
     Active Substance: FEXOFENADINE\FEXOFENADINE HYDROCHLORIDE
     Indication: PRODUCT USED FOR UNKNOWN INDICATION
     Dosage: UNK UNK, QD
     Route: 065
     Dates: start: 200709
  2. NIVOLUMAB [Suspect]
     Active Substance: NIVOLUMAB
     Indication: GLIOMATOSIS CEREBRI
     Dosage: 240 MG, Q2WK
     Route: 042
     Dates: start: 20170928, end: 20170928
  3. KEPPRA [Concomitant]
     Active Substance: LEVETIRACETAM
     Indication: PRODUCT USED FOR UNKNOWN INDICATION
     Dosage: 1500 MG, BID
     Route: 065
     Dates: start: 201603
  4. LAMICTAL [Concomitant]
     Active Substance: LAMOTRIGINE
     Indication: PRODUCT USED FOR UNKNOWN INDICATION
     Dosage: 200 MG, QD
     Route: 065
     Dates: start: 201707

REACTIONS (1)
  - Seizure [Unknown]

NARRATIVE: CASE EVENT DATE: 20171010
